FAERS Safety Report 7801002-5 (Version None)
Quarter: 2011Q4

REPORT INFORMATION
  Report Type: 
  Country: None (occurrence: None)
  Receive Date: 20111007
  Receipt Date: 20110927
  Transmission Date: 20120403
  Serious: Yes (Hospitalization)
  Sender: FDA-Public Use
  Company Number: US-BIOGENIDEC-2011BI018279

PATIENT
  Age: 55 Year
  Sex: Female

DRUGS (1)
  1. AVONEX [Suspect]
     Indication: MULTIPLE SCLEROSIS
     Route: 030
     Dates: start: 20061006

REACTIONS (11)
  - FALL [None]
  - ASTHENIA [None]
  - GAIT DISTURBANCE [None]
  - MULTIPLE SCLEROSIS RELAPSE [None]
  - URINARY INCONTINENCE [None]
  - DYSURIA [None]
  - DEPRESSED MOOD [None]
  - POSTMENOPAUSAL HAEMORRHAGE [None]
  - SPEECH DISORDER [None]
  - ANXIETY [None]
  - DEHYDRATION [None]
